FAERS Safety Report 14338976 (Version 3)
Quarter: 2024Q1

REPORT INFORMATION
  Report Type: Spontaneous
  Country: DE (occurrence: DE)
  Receive Date: 20171230
  Receipt Date: 20240116
  Transmission Date: 20240409
  Serious: Yes (Hospitalization)
  Sender: FDA-Public Use
  Company Number: DE-BIOGEN-2017BI00502851

PATIENT
  Age: 46 Year
  Sex: Female
  Weight: 95 kg

DRUGS (19)
  1. TYSABRI [Suspect]
     Active Substance: NATALIZUMAB
     Indication: Relapsing-remitting multiple sclerosis
     Route: 050
     Dates: start: 20170216, end: 20171114
  2. TYSABRI [Suspect]
     Active Substance: NATALIZUMAB
     Route: 050
     Dates: start: 201802, end: 201905
  3. TYSABRI [Suspect]
     Active Substance: NATALIZUMAB
     Route: 050
     Dates: end: 20231123
  4. NITROFURANTOIN [Concomitant]
     Active Substance: NITROFURANTOIN
     Indication: Product used for unknown indication
     Route: 050
  5. IMIPRAMIN-NEURAXPHARM [Concomitant]
     Indication: Product used for unknown indication
     Route: 050
  6. BACLOFEN [Concomitant]
     Active Substance: BACLOFEN
     Indication: Product used for unknown indication
     Route: 050
  7. FERROUS GLYCINE SULFATE [Concomitant]
     Active Substance: FERROUS GLYCINE SULFATE
     Indication: Product used for unknown indication
     Route: 050
  8. RAMIPRIL [Concomitant]
     Active Substance: RAMIPRIL
     Indication: Product used for unknown indication
     Route: 050
  9. RAMIPRIL [Concomitant]
     Active Substance: RAMIPRIL
     Route: 050
  10. PANTOPRAZOLE [Concomitant]
     Active Substance: PANTOPRAZOLE
     Indication: Product used for unknown indication
     Route: 050
  11. Monoxidin [Concomitant]
     Indication: Product used for unknown indication
     Route: 050
  12. LEVOTHYROXINE SODIUM [Concomitant]
     Active Substance: LEVOTHYROXINE SODIUM
     Indication: Product used for unknown indication
     Route: 050
  13. TOPIRAMATE [Concomitant]
     Active Substance: TOPIRAMATE
     Indication: Product used for unknown indication
     Route: 050
  14. TRIMIPRAMINE HYDROGEN MALEATE [Concomitant]
     Indication: Product used for unknown indication
     Route: 050
  15. VITAMIN B12 FORTE PLUS [Concomitant]
     Indication: Product used for unknown indication
     Dosage: 350 MG,?50 MG
     Route: 050
  16. CHOLECALCIFEROL [Concomitant]
     Active Substance: CHOLECALCIFEROL
     Indication: Product used for unknown indication
     Dosage: 20000IU
     Route: 050
  17. Vitamin B complex forte [Concomitant]
     Indication: Product used for unknown indication
     Dosage: 100 MG?0.5 MG?50 MG
     Route: 050
  18. SULFAMETHOXAZOLE\TRIMETHOPRIM [Concomitant]
     Active Substance: SULFAMETHOXAZOLE\TRIMETHOPRIM
     Indication: Product used for unknown indication
     Dosage: 960
     Route: 050
  19. Laxans [Concomitant]
     Indication: Product used for unknown indication
     Dosage: 7.78MG PRN/ AS NEEDED
     Route: 050

REACTIONS (1)
  - Warm autoimmune haemolytic anaemia [Recovered/Resolved]

NARRATIVE: CASE EVENT DATE: 20171212
